FAERS Safety Report 5259584-6 (Version None)
Quarter: 2007Q1

REPORT INFORMATION
  Report Type: 
  Country: None (occurrence: None)
  Receive Date: 20070306
  Receipt Date: 20061006
  Transmission Date: 20070707
  Serious: Yes (Death, Hospitalization)
  Sender: FDA-Public Use
  Company Number: 2006SP005321

PATIENT
  Age: 69 Year
  Sex: Male

DRUGS (7)
  1. BETAMETHASONE [Suspect]
     Indication: LARYNGEAL CANCER
     Dosage: SEE IMAGE
     Dates: start: 20060824, end: 20060828
  2. BETAMETHASONE [Suspect]
     Indication: LARYNGEAL CANCER
     Dosage: SEE IMAGE
     Dates: start: 20060829, end: 20060829
  3. OXYCONTIN [Suspect]
     Indication: LARYNGEAL CANCER
     Dosage: 40 MG; QD; PO
     Route: 048
     Dates: start: 20060718, end: 20060828
  4. HALOPERIDOL [Suspect]
     Indication: LARYNGEAL CANCER
     Dosage: SEE IMAGE
     Dates: start: 20060816, end: 20060824
  5. HALOPERIDOL [Suspect]
     Indication: LARYNGEAL CANCER
     Dosage: SEE IMAGE
     Dates: start: 20060825, end: 20060829
  6. TS-1 (TS 1) [Suspect]
     Dosage: 80 MG; PO
     Route: 048
     Dates: start: 20050801, end: 20060601
  7. PROTECADIN (LAFUTIDINE) [Suspect]
     Dosage: 1 DF; PO
     Route: 048
     Dates: start: 20050801, end: 20060815

REACTIONS (6)
  - BILE DUCT OBSTRUCTION [None]
  - DELIRIUM [None]
  - HAEMODIALYSIS [None]
  - HEPATIC FAILURE [None]
  - HEPATITIS FULMINANT [None]
  - IMMUNE SYSTEM DISORDER [None]
